FAERS Safety Report 14628685 (Version 3)
Quarter: 2018Q2

REPORT INFORMATION
  Report Type: Report from Study
  Country: None (occurrence: US)
  Receive Date: 20180313
  Receipt Date: 20180522
  Transmission Date: 20180711
  Serious: Yes (Other)
  Sender: FDA-Public Use
  Company Number: US-ABBVIE-17K-163-2097171-00

PATIENT
  Sex: Female

DRUGS (1)
  1. HUMIRA [Suspect]
     Active Substance: ADALIMUMAB
     Indication: CROHN^S DISEASE
     Route: 058

REACTIONS (20)
  - Constipation [Recovered/Resolved]
  - Bowel movement irregularity [Not Recovered/Not Resolved]
  - Gastrooesophageal reflux disease [Unknown]
  - Haematochezia [Not Recovered/Not Resolved]
  - Breast pain [Unknown]
  - Fibromyalgia [Unknown]
  - Gastrointestinal inflammation [Unknown]
  - Sluggishness [Unknown]
  - Injection site bruising [Unknown]
  - Constipation [Recovered/Resolved]
  - Abdominal distension [Unknown]
  - Constipation [Not Recovered/Not Resolved]
  - Large intestine polyp [Not Recovered/Not Resolved]
  - Large intestinal stenosis [Unknown]
  - Migraine [Recovered/Resolved]
  - Therapeutic response shortened [Unknown]
  - Migraine [Unknown]
  - Diarrhoea [Unknown]
  - Gastrointestinal motility disorder [Unknown]
  - Headache [Unknown]

NARRATIVE: CASE EVENT DATE: 2018
